FAERS Safety Report 6015186-5 (Version None)
Quarter: 2008Q4

REPORT INFORMATION
  Report Type: 
  Country: None (occurrence: None)
  Receive Date: 20081216
  Receipt Date: 20080220
  Transmission Date: 20090506
  Serious: Yes (Other)
  Sender: FDA-Public Use
  Company Number: US-WYE-H02705508

PATIENT
  Age: 67 Year
  Sex: Female
  Weight: 64.47 kg

DRUGS (7)
  1. EFFEXOR XR [Suspect]
     Indication: DEPRESSION
     Dosage: 75 MG 1X PER 1 DAY, ORAL
     Route: 048
     Dates: start: 20010101
  2. PREMARIN [Concomitant]
  3. DIOVAN [Concomitant]
  4. ATIVAN [Concomitant]
  5. LIPITOR [Concomitant]
  6. VIACTIV (CALCIUM CARBONATE) [Concomitant]
  7. MULTI-VITAMINS [Concomitant]

REACTIONS (1)
  - BREAST CALCIFICATIONS [None]
